FAERS Safety Report 10039921 (Version 1)
Quarter: 2014Q1

REPORT INFORMATION
  Report Type: Spontaneous
  Country: US (occurrence: US)
  Receive Date: 20140326
  Receipt Date: 20140326
  Transmission Date: 20141002
  Serious: Yes (Other)
  Sender: FDA-Public Use
  Company Number: US-PFIZER INC-2014083523

PATIENT
  Age: 81 Year
  Sex: Female
  Weight: 68.03 kg

DRUGS (4)
  1. LYRICA [Suspect]
     Indication: DIABETIC NEUROPATHY
     Dosage: 50 MG, 2X/DAY
     Dates: start: 2014
  2. CALCIUM [Concomitant]
     Dosage: 600 MG, UNK
  3. VITAMIN D3 [Concomitant]
     Dosage: UNK, 3X/DAY
  4. HYDROCODONE W/ACETAMINOPHEN [Concomitant]
     Dosage: UNK
     Dates: start: 201403

REACTIONS (9)
  - Cardiac disorder [Unknown]
  - Poor quality sleep [Unknown]
  - Pain in extremity [Unknown]
  - Back pain [Unknown]
  - Feeling hot [Unknown]
  - Weight increased [Unknown]
  - Local swelling [Unknown]
  - Disturbance in attention [Unknown]
  - Sleep disorder [Unknown]
